FAERS Safety Report 14795519 (Version 8)
Quarter: 2020Q2

REPORT INFORMATION
  Report Type: Spontaneous
  Country: GB (occurrence: GB)
  Receive Date: 20180423
  Receipt Date: 20200414
  Transmission Date: 20200713
  Serious: Yes (Hospitalization, Other)
  Sender: FDA-Public Use
  Company Number: PHHY2017GB165881

PATIENT
  Age: 81 Year
  Sex: Male

DRUGS (7)
  1. CEFTRIAXONE. [Suspect]
     Active Substance: CEFTRIAXONE
     Indication: CELLULITIS
     Dosage: 2 G, UNK
     Route: 042
  2. PREDNISOLONE. [Suspect]
     Active Substance: PREDNISOLONE
     Indication: TEMPORAL ARTERITIS
     Dosage: 60 MG, QD
     Route: 065
  3. FLUCLOXACILLIN [Suspect]
     Active Substance: FLUCLOXACILLIN
     Indication: CELLULITIS
  4. VORICONAZOLE. [Suspect]
     Active Substance: VORICONAZOLE
     Indication: FUNGAL INFECTION
     Dosage: 400 MG, BID
     Route: 048
  5. VORICONAZOLE. [Suspect]
     Active Substance: VORICONAZOLE
     Indication: SCEDOSPORIUM INFECTION
     Dosage: 200 MG, BID
     Route: 048
  6. PREDNISOLONE. [Suspect]
     Active Substance: PREDNISOLONE
     Dosage: 40 MG, QD
     Route: 065
  7. FLUCLOXACILLIN [Suspect]
     Active Substance: FLUCLOXACILLIN
     Indication: SCEDOSPORIUM INFECTION
     Dosage: 1 G, QID
     Route: 048

REACTIONS (6)
  - C-reactive protein increased [Unknown]
  - Nephropathy [Unknown]
  - Soft tissue infection [Unknown]
  - Scedosporium infection [Recovering/Resolving]
  - Therapeutic product effect incomplete [Unknown]
  - Cellulitis [Recovering/Resolving]
